FAERS Safety Report 7675656-0 (Version None)
Quarter: 2011Q3

REPORT INFORMATION
  Report Type: 
  Country: None (occurrence: None)
  Receive Date: 20110810
  Receipt Date: 20110804
  Transmission Date: 20111222
  Serious: Yes (Death, Hospitalization)
  Sender: FDA-Public Use
  Company Number: JP-ELI_LILLY_AND_COMPANY-JP201107000032

PATIENT
  Sex: Male
  Weight: 64 kg

DRUGS (10)
  1. GEMZAR [Suspect]
     Dosage: 1400 MG, OTHER
     Route: 042
     Dates: start: 20071122, end: 20071129
  2. CISPLATIN [Concomitant]
     Dosage: 135 MG, OTHER
     Route: 042
     Dates: start: 20070926, end: 20070926
  3. CISPLATIN [Concomitant]
     Dosage: 135 MG, OTHER
     Route: 042
     Dates: start: 20071025, end: 20071025
  4. GEMZAR [Suspect]
     Dosage: 1400 MG, OTHER
     Route: 042
     Dates: start: 20071025, end: 20071101
  5. KYTRIL [Concomitant]
     Indication: PROPHYLAXIS
     Dosage: 3 ML, UNK
     Route: 042
     Dates: start: 20070829, end: 20071129
  6. DECADRON [Concomitant]
     Indication: PROPHYLAXIS
     Dosage: 12 MG, UNK
     Route: 042
     Dates: start: 20070829, end: 20071129
  7. GEMZAR [Suspect]
     Indication: NON-SMALL CELL LUNG CANCER STAGE IIIB
     Dosage: 1700 MG, OTHER
     Route: 042
     Dates: start: 20070829, end: 20070904
  8. CISPLATIN [Concomitant]
     Dosage: 135 MG, OTHER
     Route: 042
     Dates: start: 20071122, end: 20071122
  9. CISPLATIN [Concomitant]
     Indication: NON-SMALL CELL LUNG CANCER STAGE IIIB
     Dosage: 135 MG, OTHER
     Route: 042
     Dates: start: 20070829, end: 20070829
  10. GEMZAR [Suspect]
     Dosage: 1400 MG, OTHER
     Route: 042
     Dates: start: 20070926, end: 20071004

REACTIONS (8)
  - GASTROINTESTINAL HAEMORRHAGE [None]
  - INTERSTITIAL LUNG DISEASE [None]
  - GASTROINTESTINAL DISORDER [None]
  - NEUTROPHIL COUNT DECREASED [None]
  - RESPIRATORY FAILURE [None]
  - NAUSEA [None]
  - HYPOKALAEMIA [None]
  - INSOMNIA [None]
